FAERS Safety Report 7270337-X (Version None)
Quarter: 2011Q1

REPORT INFORMATION
  Report Type: 
  Country: None (occurrence: None)
  Receive Date: 20110202
  Receipt Date: 20110125
  Transmission Date: 20110831
  Serious: Yes (Other)
  Sender: FDA-Public Use
  Company Number: US-BAYER-201039496NA

PATIENT
  Sex: Female
  Weight: 80.272 kg

DRUGS (3)
  1. ZOLOFT [Concomitant]
     Indication: DEPRESSIVE SYMPTOM
     Dosage: 50 MG, UNK
     Route: 048
     Dates: start: 20100810
  2. MIRENA [Suspect]
     Indication: CONTRACEPTION
     Dosage: DAILY DOSE 20 ?G
     Route: 015
     Dates: start: 20100921, end: 20101025
  3. ALDOMET [Concomitant]
     Indication: HYPERTENSION
     Dosage: 250 MG, UNK
     Route: 048

REACTIONS (1)
  - DEVICE DISLOCATION [None]
